FAERS Safety Report 5477517-4 (Version None)
Quarter: 2007Q4

REPORT INFORMATION
  Report Type: 
  Country: None (occurrence: None)
  Receive Date: 20071001
  Receipt Date: 20070913
  Transmission Date: 20080405
  Serious: Yes (Death)
  Sender: FDA-Public Use
  Company Number: GXKR2007SG07967

PATIENT
  Age: 72 Year
  Sex: Male

DRUGS (4)
  1. PROPRANOLOL [Suspect]
     Indication: THYROTOXIC CRISIS
     Dosage: 20 MG, Q6H, UNKNOWN
  2. PROPYLTHIOURACIL [Concomitant]
  3. HYDROCORTISONE [Concomitant]
  4. CEFTRIAXONE [Concomitant]

REACTIONS (4)
  - CARDIAC ARREST [None]
  - HYPOTENSION [None]
  - SINUS BRADYCARDIA [None]
  - UNRESPONSIVE TO STIMULI [None]
